FAERS Safety Report 6614602-5 (Version None)
Quarter: 2010Q1

REPORT INFORMATION
  Report Type: 
  Country: None (occurrence: None)
  Receive Date: 20100226
  Receipt Date: 20100216
  Transmission Date: 20100710
  Serious: Yes (Hospitalization)
  Sender: FDA-Public Use
  Company Number: 95404

PATIENT
  Age: 69 Year
  Sex: Male
  Weight: 79.3795 kg

DRUGS (1)
  1. CISPLATIN [Suspect]
     Indication: HEAD AND NECK CANCER
     Dosage: 20MG/M2
     Dates: start: 20091124

REACTIONS (8)
  - DECREASED APPETITE [None]
  - DEHYDRATION [None]
  - HYPOPHAGIA [None]
  - MALNUTRITION [None]
  - MUCOSAL INFLAMMATION [None]
  - NAUSEA [None]
  - OEDEMA MOUTH [None]
  - ORAL PAIN [None]
